FAERS Safety Report 15619472 (Version 1)
Quarter: 2018Q4

REPORT INFORMATION
  Report Type: Report from Study
  Country: ES (occurrence: ES)
  Receive Date: 20181115
  Receipt Date: 20181115
  Transmission Date: 20190205
  Serious: Yes (Other)
  Sender: FDA-Public Use
  Company Number: ES-ACCORD-092055

PATIENT
  Age: 4 Year
  Sex: Female

DRUGS (6)
  1. METHOTREXATE. [Suspect]
     Active Substance: METHOTREXATE
     Indication: ACUTE LYMPHOCYTIC LEUKAEMIA
     Route: 048
     Dates: start: 20180124
  2. SEPTRIN [Concomitant]
     Active Substance: SULFAMETHOXAZOLE\TRIMETHOPRIM
     Indication: OPPORTUNISTIC INFECTION PROPHYLAXIS
     Dosage: STRENGTH:8 MG/40 MG/ML
     Route: 048
     Dates: start: 20170523
  3. ZOVIRAX [Concomitant]
     Active Substance: ACYCLOVIR
     Indication: ACUTE LYMPHOCYTIC LEUKAEMIA
     Dosage: STRENGTH:400 MG/5 ML
     Route: 048
     Dates: start: 20170523
  4. ONCASPAR [Interacting]
     Active Substance: PEGASPARGASE
     Indication: ACUTE LYMPHOCYTIC LEUKAEMIA
     Dosage: STRENGTH: 750U / M
     Route: 030
     Dates: start: 20180131
  5. MERCAPTOPURINE/MERCAPTOPURINE ANHYDROUS [Interacting]
     Active Substance: MERCAPTOPURINE
     Indication: ACUTE LYMPHOCYTIC LEUKAEMIA
     Route: 048
     Dates: start: 20180124
  6. HYDROCORTISONE. [Concomitant]
     Active Substance: HYDROCORTISONE
     Indication: ADRENAL INSUFFICIENCY
     Route: 048

REACTIONS (2)
  - Influenza [Recovered/Resolved]
  - Drug interaction [Unknown]

NARRATIVE: CASE EVENT DATE: 20180207
